FAERS Safety Report 16927332 (Version 4)
Quarter: 2020Q4

REPORT INFORMATION
  Report Type: Report from Study
  Country: AU (occurrence: AU)
  Receive Date: 20191016
  Receipt Date: 20201103
  Transmission Date: 20210113
  Serious: Yes (Hospitalization, Other)
  Sender: FDA-Public Use
  Company Number: PHHY2019AU220776

PATIENT
  Age: 53 Year
  Sex: Male

DRUGS (13)
  1. PREGABALIN. [Concomitant]
     Active Substance: PREGABALIN
     Dosage: 150 MG (IN MORNING)
     Route: 048
  2. ENDEP [Concomitant]
     Active Substance: AMITRIPTYLINE HYDROCHLORIDE
     Indication: PAIN
     Dosage: NIGHT
     Route: 065
     Dates: start: 2015, end: 2016
  3. PERINDOPRIL [Concomitant]
     Active Substance: PERINDOPRIL
     Indication: PRODUCT USED FOR UNKNOWN INDICATION
     Dosage: 5 MG (IN MORNING)
     Route: 048
  4. CANAKINUMAB. [Suspect]
     Active Substance: CANAKINUMAB
     Dosage: 150 MG, Q4W
     Route: 058
  5. ESOMEPRAZOLE. [Concomitant]
     Active Substance: ESOMEPRAZOLE MAGNESIUM
     Indication: PRODUCT USED FOR UNKNOWN INDICATION
     Dosage: 40 MG (IN MORNING)
     Route: 048
  6. CANAKINUMAB. [Suspect]
     Active Substance: CANAKINUMAB
     Indication: PYODERMA GANGRENOSUM
     Dosage: 300 MG, Q4W
     Route: 058
  7. WARFARIN [Concomitant]
     Active Substance: WARFARIN
     Indication: PRODUCT USED FOR UNKNOWN INDICATION
     Dosage: UNK
     Route: 065
  8. POTASSIUM CHLORIDE. [Concomitant]
     Active Substance: POTASSIUM CHLORIDE
     Indication: PRODUCT USED FOR UNKNOWN INDICATION
     Dosage: 600 MG (IN MORNING)
     Route: 048
  9. PREDNISOLONE. [Concomitant]
     Active Substance: PREDNISOLONE
     Indication: PRODUCT USED FOR UNKNOWN INDICATION
     Dosage: 25 MG, QD
     Route: 048
  10. PREGABALIN. [Concomitant]
     Active Substance: PREGABALIN
     Dosage: 225 MG (IN NIGHT)
     Route: 048
  11. CHOLECALCIFEROL [Concomitant]
     Active Substance: CHOLECALCIFEROL
     Indication: PRODUCT USED FOR UNKNOWN INDICATION
     Dosage: 25 UG, QD
     Route: 048
  12. PREGABALIN. [Concomitant]
     Active Substance: PREGABALIN
     Indication: PAIN
     Dosage: UNK UNK, BID
     Route: 048
     Dates: start: 2015, end: 2016
  13. TARGIN [Concomitant]
     Active Substance: NALOXONE HYDROCHLORIDE\OXYCODONE HYDROCHLORIDE
     Indication: PRODUCT USED FOR UNKNOWN INDICATION
     Dosage: 5/2.5 MG (IN MORNING)
     Route: 065

REACTIONS (6)
  - Pyrexia [Recovering/Resolving]
  - Pyoderma gangrenosum [Unknown]
  - Tachycardia [Recovering/Resolving]
  - Drug ineffective [Unknown]
  - Infection [Recovering/Resolving]
  - Disease progression [Unknown]

NARRATIVE: CASE EVENT DATE: 20190825
